FAERS Safety Report 6437397-7 (Version None)
Quarter: 2009Q4

REPORT INFORMATION
  Report Type: 
  Country: None (occurrence: None)
  Receive Date: 20091112
  Receipt Date: 20091028
  Transmission Date: 20100525
  Serious: Yes (Hospitalization)
  Sender: FDA-Public Use
  Company Number: US-BAYER-200937441GPV

PATIENT
  Age: 36 Year
  Sex: Female

DRUGS (2)
  1. CLOPIDOGREL [Suspect]
     Indication: CORONARY ARTERY DISEASE
  2. ASPIRIN [Suspect]
     Indication: CORONARY ARTERY DISEASE

REACTIONS (1)
  - HAEMORRHAGE [None]
